FAERS Safety Report 13177782 (Version 2)
Quarter: 2017Q1

REPORT INFORMATION
  Report Type: Spontaneous
  Country: FR (occurrence: FR)
  Receive Date: 20170201
  Receipt Date: 20170215
  Transmission Date: 20170428
  Serious: Yes (Death)
  Sender: FDA-Public Use
  Company Number: FR-ROCHE-1885943

PATIENT
  Age: 70 Year
  Sex: Male

DRUGS (5)
  1. PARACETAMOL PANPHARMA [Suspect]
     Active Substance: ACETAMINOPHEN
     Indication: JOINT DISLOCATION REDUCTION
     Dosage: 10 MG/ML
     Route: 041
     Dates: start: 20170111, end: 20170111
  2. VALIUM [Suspect]
     Active Substance: DIAZEPAM
     Indication: JOINT DISLOCATION REDUCTION
     Route: 042
     Dates: start: 20170111, end: 20170111
  3. MORPHINE LAVOISIER [Suspect]
     Active Substance: MORPHINE HYDROCHLORIDE
     Indication: JOINT DISLOCATION REDUCTION
     Route: 042
     Dates: start: 20170111, end: 20170111
  4. ENTONOX [Suspect]
     Active Substance: NITROUS OXIDE\OXYGEN
     Indication: JOINT DISLOCATION REDUCTION
     Route: 055
     Dates: start: 20170111, end: 20170111
  5. ACUPAN [Suspect]
     Active Substance: NEFOPAM HYDROCHLORIDE
     Indication: JOINT DISLOCATION REDUCTION
     Route: 041
     Dates: start: 20170111, end: 20170111

REACTIONS (1)
  - Cardiac arrest [Fatal]

NARRATIVE: CASE EVENT DATE: 20170111
